FAERS Safety Report 16945892 (Version 1)
Quarter: 2019Q4

REPORT INFORMATION
  Report Type: Spontaneous
  Country: US (occurrence: US)
  Receive Date: 20191022
  Receipt Date: 20191022
  Transmission Date: 20200122
  Serious: Yes (Hospitalization, Other)
  Sender: FDA-Public Use
  Company Number: US-JNJFOC-20191015244

PATIENT
  Sex: Female
  Weight: 68.1 kg

DRUGS (9)
  1. RISPERDAL [Suspect]
     Active Substance: RISPERIDONE
     Dosage: ONCE A DAY AT BEDTIME
  2. RISPERDAL [Suspect]
     Active Substance: RISPERIDONE
     Dosage: ONCE A DAY AT BEDTIME
     Dates: start: 2006, end: 201904
  3. RISPERDAL [Suspect]
     Active Substance: RISPERIDONE
     Dosage: ONCE A DAY AT BED TIME
  4. RISPERDAL [Suspect]
     Active Substance: RISPERIDONE
     Indication: PANIC ATTACK
     Dosage: ONCE A DAY AT BEDTIME
  5. PROCHLORPERAZINE. [Concomitant]
     Active Substance: PROCHLORPERAZINE
     Indication: NAUSEA
     Route: 048
     Dates: start: 2007
  6. BENTYL [Concomitant]
     Active Substance: DICYCLOMINE HYDROCHLORIDE
     Indication: NAUSEA
     Route: 048
     Dates: start: 2007
  7. MORPHINE [Concomitant]
     Active Substance: MORPHINE
     Indication: HEADACHE
  8. SEROQUEL [Concomitant]
     Active Substance: QUETIAPINE FUMARATE
     Route: 048
     Dates: end: 2018
  9. RISPERDAL [Suspect]
     Active Substance: RISPERIDONE
     Dosage: ONCE A DAY AT BED TIME

REACTIONS (13)
  - Off label use [Unknown]
  - Headache [Not Recovered/Not Resolved]
  - Memory impairment [Not Recovered/Not Resolved]
  - Exposure during pregnancy [Unknown]
  - Intracranial aneurysm [Unknown]
  - Dizziness [Not Recovered/Not Resolved]
  - Premature labour [Unknown]
  - Ear, nose and throat examination abnormal [Not Recovered/Not Resolved]
  - Product use in unapproved indication [Unknown]
  - Dyskinesia [Not Recovered/Not Resolved]
  - Abnormal weight gain [Not Recovered/Not Resolved]
  - Sinusitis [Not Recovered/Not Resolved]
  - Nausea [Not Recovered/Not Resolved]

NARRATIVE: CASE EVENT DATE: 2005
